FAERS Safety Report 5145713-1 (Version None)
Quarter: 2006Q4

REPORT INFORMATION
  Report Type: 
  Country: None (occurrence: None)
  Receive Date: 20060915
  Receipt Date: 20050816
  Transmission Date: 20070319
  Serious: Yes (Hospitalization)
  Sender: FDA-Public Use
  Company Number: S05-USA-03974-01

PATIENT
  Age: 16 Year
  Sex: Female

DRUGS (1)
  1. CELEXA [Suspect]
     Indication: DEPRESSION
     Dates: start: 20010401, end: 20010501

REACTIONS (7)
  - AGITATION [None]
  - ANXIETY [None]
  - DEPRESSED MOOD [None]
  - HOSTILITY [None]
  - MULTIPLE DRUG OVERDOSE INTENTIONAL [None]
  - SUICIDAL IDEATION [None]
  - SUICIDE ATTEMPT [None]
